FAERS Safety Report 13338376 (Version 1)
Quarter: 2017Q1

REPORT INFORMATION
  Report Type: Spontaneous
  Country: US (occurrence: US)
  Receive Date: 20170315
  Receipt Date: 20170315
  Transmission Date: 20170428
  Serious: No
  Sender: FDA-Public Use
  Company Number: US-BAYER-2017-046757

PATIENT
  Age: 30 Year
  Sex: Female

DRUGS (2)
  1. LORATADINE. [Suspect]
     Active Substance: LORATADINE
     Indication: ECZEMA
     Dosage: 10 MG, UNK
  2. PREDNISONE. [Suspect]
     Active Substance: PREDNISONE
     Indication: ECZEMA
     Dosage: 50 MG, UNK
     Route: 048

REACTIONS (1)
  - Therapeutic response unexpected [None]
